FAERS Safety Report 15959825 (Version 1)
Quarter: 2019Q1

REPORT INFORMATION
  Report Type: Spontaneous
  Country: US (occurrence: US)
  Receive Date: 20190214
  Receipt Date: 20190214
  Transmission Date: 20190417
  Serious: Yes (Other)
  Sender: FDA-Public Use
  Company Number: US-ROCHE-2206236

PATIENT
  Age: 42 Year
  Sex: Female

DRUGS (6)
  1. LEVETIRACETAM. [Concomitant]
     Active Substance: LEVETIRACETAM
  2. LEVOTHYROXINE. [Concomitant]
     Active Substance: LEVOTHYROXINE
  3. LACOSAMIDE. [Concomitant]
     Active Substance: LACOSAMIDE
  4. ALECTINIB. [Suspect]
     Active Substance: ALECTINIB
     Indication: NON-SMALL CELL LUNG CANCER
     Route: 065
     Dates: start: 201512, end: 201606
  5. ALECTINIB. [Suspect]
     Active Substance: ALECTINIB
     Route: 065
     Dates: start: 201608, end: 201610
  6. ALECTINIB. [Suspect]
     Active Substance: ALECTINIB
     Route: 065
     Dates: start: 201611

REACTIONS (1)
  - Hepatotoxicity [Recovered/Resolved]
